FAERS Safety Report 12683517 (Version 1)
Quarter: 2016Q3

REPORT INFORMATION
  Report Type: Spontaneous
  Country: CN (occurrence: CN)
  Receive Date: 20160825
  Receipt Date: 20160825
  Transmission Date: 20161109
  Serious: Yes (Life-Threatening, Hospitalization)
  Sender: FDA-Public Use
  Company Number: CN-JNJFOC-20160819248

PATIENT
  Age: 55 Year
  Sex: Male

DRUGS (1)
  1. FENTANYL. [Suspect]
     Active Substance: FENTANYL
     Indication: MUSCULOSKELETAL DISCOMFORT
     Dosage: 8.4 MG/PATCH; AT 10 PM
     Route: 062
     Dates: start: 20140331

REACTIONS (5)
  - Overdose [Unknown]
  - Sinus tachycardia [Recovered/Resolved]
  - Self-medication [Unknown]
  - Coma [Recovered/Resolved]
  - Respiratory failure [Recovered/Resolved]

NARRATIVE: CASE EVENT DATE: 20140401
